FAERS Safety Report 19824303 (Version 1)
Quarter: 2021Q3

REPORT INFORMATION
  Report Type: Spontaneous
  Country: FR (occurrence: FR)
  Receive Date: 20210913
  Receipt Date: 20210913
  Transmission Date: 20211014
  Serious: Yes (Other)
  Sender: FDA-Public Use
  Company Number: FR-MYLANLABS-2021M1061075

PATIENT
  Age: 44 Year
  Sex: Male

DRUGS (3)
  1. NIVAQUINE                          /00001001/ [Suspect]
     Active Substance: CHLOROQUINE
     Indication: PRODUCT USED FOR UNKNOWN INDICATION
     Dosage: 2 DOSAGE FORM, QD
  2. METHOTREXATE. [Suspect]
     Active Substance: METHOTREXATE
     Indication: PRODUCT USED FOR UNKNOWN INDICATION
     Dosage: UNK
  3. TRANDATE [Suspect]
     Active Substance: LABETALOL HYDROCHLORIDE
     Indication: PRODUCT USED FOR UNKNOWN INDICATION
     Dosage: UNK

REACTIONS (12)
  - Alopecia [Unknown]
  - Retinopathy [Unknown]
  - Overlap syndrome [Unknown]
  - Arthralgia [Unknown]
  - Sjogren^s syndrome [Unknown]
  - Episcleritis [Unknown]
  - Eye naevus [Unknown]
  - Melanocytic naevus [Unknown]
  - Anxiety [Unknown]
  - Maculopathy [Unknown]
  - Rash [Unknown]
  - Visual impairment [Unknown]
